FAERS Safety Report 16438031 (Version 2)
Quarter: 2019Q2

REPORT INFORMATION
  Report Type: Spontaneous
  Country: US (occurrence: US)
  Receive Date: 20190617
  Receipt Date: 20190618
  Transmission Date: 20190711
  Serious: No
  Sender: FDA-Public Use
  Company Number: US-009507513-1906USA005648

PATIENT
  Age: 51 Year
  Sex: Female

DRUGS (1)
  1. JANUMET [Suspect]
     Active Substance: METFORMIN HYDROCHLORIDE\SITAGLIPTIN PHOSPHATE
     Indication: GLUCOSE TOLERANCE IMPAIRED
     Dosage: 2 TABLETS DAILY
     Route: 048
     Dates: start: 2017

REACTIONS (2)
  - Product dose omission [Unknown]
  - Feeling jittery [Not Recovered/Not Resolved]

NARRATIVE: CASE EVENT DATE: 20190613
